FAERS Safety Report 13848767 (Version 1)
Quarter: 2017Q3

REPORT INFORMATION
  Report Type: Spontaneous
  Country: CA (occurrence: CA)
  Receive Date: 20170809
  Receipt Date: 20170809
  Transmission Date: 20171127
  Serious: Yes (Hospitalization)
  Sender: FDA-Public Use
  Company Number: CA-TEVA-793633ACC

PATIENT
  Age: 74 Year
  Sex: Female

DRUGS (11)
  1. METFORMIN [Concomitant]
     Active Substance: METFORMIN HYDROCHLORIDE
  2. ATENOLOL TABLETS, BP [Concomitant]
     Active Substance: ATENOLOL
  3. SPIRIVA [Concomitant]
     Active Substance: TIOTROPIUM BROMIDE MONOHYDRATE
  4. ASA [Concomitant]
     Active Substance: ASPIRIN
  5. CALCIUM TABLETS [Concomitant]
  6. MYLAN-NITRO PATCH [Concomitant]
  7. SALBUTAMOL [Concomitant]
     Active Substance: ALBUTEROL
  8. ZENHALE [Concomitant]
     Active Substance: FORMOTEROL FUMARATE\MOMETASONE FUROATE
  9. DILTIAZEM CD [Concomitant]
     Active Substance: DILTIAZEM
  10. ALENDRONATE [Suspect]
     Active Substance: ALENDRONATE SODIUM
     Indication: OSTEOPOROSIS
     Route: 048
  11. SIMVASTATIN. [Concomitant]
     Active Substance: SIMVASTATIN

REACTIONS (2)
  - Atypical femur fracture [Recovering/Resolving]
  - Fall [Recovering/Resolving]
